FAERS Safety Report 9808681 (Version 1)
Quarter: 2014Q1

REPORT INFORMATION
  Report Type: Spontaneous
  Country: US (occurrence: US)
  Receive Date: 20140110
  Receipt Date: 20140110
  Transmission Date: 20141002
  Serious: Yes (Death)
  Sender: FDA-Public Use
  Company Number: US-PFIZER INC-2014008162

PATIENT
  Age: 91 Year
  Sex: Male

DRUGS (1)
  1. ARGATROBAN [Suspect]
     Route: 051

REACTIONS (1)
  - Death [Fatal]
